FAERS Safety Report 19462528 (Version 1)
Quarter: 2021Q2

REPORT INFORMATION
  Report Type: Spontaneous
  Country: US (occurrence: US)
  Receive Date: 20210625
  Receipt Date: 20210625
  Transmission Date: 20210717
  Serious: Yes (Hospitalization, Other)
  Sender: FDA-Public Use
  Company Number: US-ASTRAZENECA-2021A517937

PATIENT
  Age: 24067 Day
  Sex: Female
  Weight: 74.8 kg

DRUGS (6)
  1. FAMOTIDINE. [Suspect]
     Active Substance: FAMOTIDINE
     Route: 065
  2. HYDROCHLOROQUINE [Suspect]
     Active Substance: HYDROXYCHLOROQUINE SULFATE
     Dosage: 200.0MG UNKNOWN
     Route: 065
     Dates: start: 202006
  3. DESVENLAFAXINE. [Suspect]
     Active Substance: DESVENLAFAXINE
     Route: 048
  4. PRILOSEC [Suspect]
     Active Substance: OMEPRAZOLE MAGNESIUM
     Dosage: 20.0MG UNKNOWN
     Route: 048
  5. ZOLOFT [Suspect]
     Active Substance: SERTRALINE HYDROCHLORIDE
     Route: 065
  6. VENLAFAXINE [Suspect]
     Active Substance: VENLAFAXINE HYDROCHLORIDE
     Route: 065

REACTIONS (14)
  - Dysphonia [Unknown]
  - Panic attack [Unknown]
  - Agoraphobia [Unknown]
  - Speech disorder [Unknown]
  - Oesophageal disorder [Unknown]
  - Product use issue [Unknown]
  - Throat irritation [Unknown]
  - Dyspepsia [Unknown]
  - Blood sodium decreased [Unknown]
  - Sjogren^s syndrome [Unknown]
  - Drug ineffective [Unknown]
  - Nervousness [Unknown]
  - Rheumatoid arthritis [Unknown]
  - Illness [Unknown]

NARRATIVE: CASE EVENT DATE: 20210119
